FAERS Safety Report 6676597-8 (Version None)
Quarter: 2010Q2

REPORT INFORMATION
  Report Type: 
  Country: None (occurrence: None)
  Receive Date: 20100412
  Receipt Date: 20100319
  Transmission Date: 20101027
  Serious: Yes (Hospitalization)
  Sender: FDA-Public Use
  Company Number: PHHY2010US20657

PATIENT
  Sex: Male
  Weight: 93 kg

DRUGS (8)
  1. NEORAL [Suspect]
     Indication: RENAL TRANSPLANT
     Dosage: 600 MG/DAY
     Dates: start: 20080514
  2. NEORAL [Suspect]
     Dosage: 150 MG, DAILY
  3. BACTRIM DS [Concomitant]
     Dosage: 800 MG - 160 MG, DAILY
     Route: 048
     Dates: start: 20080514
  4. RAPAMUNE [Concomitant]
     Dosage: 2 MG, DAILY
     Dates: start: 20080514
  5. CARVEDILOL [Concomitant]
     Dosage: 25 MG, DAILY
     Route: 048
     Dates: start: 20080514
  6. SODIUM BICARBONATE [Concomitant]
     Dosage: 9 MG, DAILY
     Dates: start: 20080514
  7. FUROSEMIDE [Concomitant]
     Dosage: 40 MG, WEEKLY
     Route: 048
     Dates: start: 20091020
  8. LIPITOR [Concomitant]
     Dosage: 10 MG, DAILY
     Route: 048
     Dates: start: 20080514

REACTIONS (1)
  - HERNIA [None]
